FAERS Safety Report 8488379-5 (Version None)
Quarter: 2012Q3

REPORT INFORMATION
  Report Type: 
  Country: None (occurrence: None)
  Receive Date: 20120705
  Receipt Date: 20120629
  Transmission Date: 20120928
  Serious: Yes (Life-Threatening, Hospitalization)
  Sender: FDA-Public Use
  Company Number: US-BAYER-2012-038652

PATIENT
  Age: 31 Year
  Sex: Female
  Weight: 73.923 kg

DRUGS (9)
  1. IBUPROFEN [Concomitant]
     Dosage: 600 MG, UNK
     Dates: start: 20110419
  2. YASMIN [Suspect]
  3. LORATADINE [Concomitant]
     Dosage: UNK UNK, PRN
     Dates: start: 20080826, end: 20110711
  4. ACETAMINOPHEN [Concomitant]
     Indication: LIGAMENT SPRAIN
  5. YAZ [Suspect]
  6. POTASSIUM CHLORIDE [Concomitant]
     Dosage: UNK
     Dates: start: 20110531
  7. MOTRIN [Concomitant]
     Dosage: 400 MG, UNK
  8. MULTI-VITAMIN [Concomitant]
     Dosage: DAILY
  9. DROSPIRENONE AND ETHINYL ESTRADIOL [Suspect]

REACTIONS (8)
  - PAIN [None]
  - DEEP VEIN THROMBOSIS [None]
  - ANHEDONIA [None]
  - INJURY [None]
  - ANXIETY [None]
  - EMOTIONAL DISTRESS [None]
  - PULMONARY EMBOLISM [None]
  - GENERAL PHYSICAL HEALTH DETERIORATION [None]
